FAERS Safety Report 16221684 (Version 2)
Quarter: 2019Q3

REPORT INFORMATION
  Report Type: Spontaneous
  Country: CA (occurrence: CA)
  Receive Date: 20190422
  Receipt Date: 20190831
  Transmission Date: 20191004
  Serious: Yes (Other)
  Sender: FDA-Public Use
  Company Number: CA-TEVA-2019-CA-1039649

PATIENT
  Age: 77 Year
  Sex: Female

DRUGS (4)
  1. REVLIMID [Suspect]
     Active Substance: LENALIDOMIDE
     Indication: PRODUCT USED FOR UNKNOWN INDICATION
     Route: 065
  2. DEXAMETHASONE. [Suspect]
     Active Substance: DEXAMETHASONE
     Indication: PRODUCT USED FOR UNKNOWN INDICATION
     Route: 065
  3. IXAZOMIB [Suspect]
     Active Substance: IXAZOMIB
     Indication: PLASMA CELL MYELOMA
     Route: 048
  4. LENALIDOMIDE [Suspect]
     Active Substance: LENALIDOMIDE
     Indication: PRODUCT USED FOR UNKNOWN INDICATION
     Route: 065

REACTIONS (5)
  - Renal failure [Unknown]
  - Ageusia [Unknown]
  - Malaise [Unknown]
  - Aphonia [Unknown]
  - Rash [Unknown]
